FAERS Safety Report 14281564 (Version 1)
Quarter: 2017Q4

REPORT INFORMATION
  Report Type: Spontaneous
  Country: US (occurrence: US)
  Receive Date: 20171213
  Receipt Date: 20171213
  Transmission Date: 20180321
  Serious: No
  Sender: FDA-Public Use
  Company Number: None

PATIENT
  Age: 18 Month
  Sex: Male
  Weight: 13.5 kg

DRUGS (3)
  1. CEFDINIR. [Concomitant]
     Active Substance: CEFDINIR
  2. DABRAFENIB [Suspect]
     Active Substance: DABRAFENIB
     Indication: BRAF V600E MUTATION POSITIVE
     Route: 048
     Dates: start: 20161216, end: 20171010
  3. DABRAFENIB [Suspect]
     Active Substance: DABRAFENIB
     Indication: GANGLIOGLIOMA
     Route: 048
     Dates: start: 20161216, end: 20171010

REACTIONS (4)
  - Aspartate aminotransferase increased [None]
  - Otitis media [None]
  - Alanine aminotransferase increased [None]
  - Toxicity to various agents [None]

NARRATIVE: CASE EVENT DATE: 20171010
